FAERS Safety Report 4614851-1 (Version None)
Quarter: 2005Q1

REPORT INFORMATION
  Report Type: 
  Country: None (occurrence: None)
  Receive Date: 20050318
  Receipt Date: 20050318
  Transmission Date: 20050727
  Serious: Yes (Death)
  Sender: FDA-Public Use
  Company Number: None

PATIENT
  Age: 46 Year
  Sex: Male
  Weight: 79.3795 kg

DRUGS (1)
  1. AMANTADINE    UPSHER-SMITH [Suspect]
     Indication: PARKINSON'S DISEASE
     Dosage: 100 MG   Q AM X 1O D TH    ORAL
     Route: 048
     Dates: start: 20040323, end: 20050225

REACTIONS (2)
  - ANGER [None]
  - DEPRESSION [None]
